FAERS Safety Report 10777339 (Version 1)
Quarter: 2015Q1

REPORT INFORMATION
  Report Type: Spontaneous
  Country: US (occurrence: None)
  Receive Date: 20150206
  Receipt Date: 20150206
  Transmission Date: 20150721
  Serious: Yes (Other)
  Sender: FDA-Public Use
  Company Number: None

PATIENT
  Age: 31 Year
  Sex: Female
  Weight: 68.49 kg

DRUGS (1)
  1. BUPRENORPHINE HCL [Suspect]
     Active Substance: BUPRENORPHINE HYDROCHLORIDE
     Indication: PREGNANCY
     Dosage: 30 TAB SUBL
     Route: 048
     Dates: start: 20141001

REACTIONS (1)
  - Exposure during breast feeding [None]

NARRATIVE: CASE EVENT DATE: 20141201
